FAERS Safety Report 6043033-4 (Version None)
Quarter: 2009Q1

REPORT INFORMATION
  Report Type: 
  Country: None (occurrence: None)
  Receive Date: 20090119
  Receipt Date: 20090106
  Transmission Date: 20090719
  Serious: Yes (Hospitalization, Other)
  Sender: FDA-Public Use
  Company Number: US-ELI_LILLY_AND_COMPANY-US200812002748

PATIENT
  Sex: Female
  Weight: 63.946 kg

DRUGS (13)
  1. FORTEO [Suspect]
     Indication: OSTEOPOROSIS
     Dosage: 20 UG, DAILY (1/D)
     Dates: start: 20080401, end: 20081125
  2. ZANTAC [Concomitant]
  3. ZOCOR [Concomitant]
  4. ALDACTONE [Concomitant]
  5. TOPROL-XL [Concomitant]
  6. ELAVIL [Concomitant]
  7. LASIX [Concomitant]
  8. ZESTRIL [Concomitant]
  9. POTASSIUM CHLORIDE [Concomitant]
  10. VITAMIN D [Concomitant]
  11. SYNTHROID [Concomitant]
  12. DIGOXIN [Concomitant]
  13. FLECAINIDE ACETATE [Concomitant]

REACTIONS (4)
  - ASTHENIA [None]
  - COLITIS [None]
  - HYPOTENSION [None]
  - RENAL FAILURE [None]
